FAERS Safety Report 4463548-X (Version None)
Quarter: 2004Q3

REPORT INFORMATION
  Report Type: 
  Country: None (occurrence: None)
  Receive Date: 20040928
  Receipt Date: 20040914
  Transmission Date: 20050211
  Serious: Yes (Death, Hospitalization)
  Sender: FDA-Public Use
  Company Number: B0345251A

PATIENT
  Age: 40 Year
  Sex: Female

DRUGS (3)
  1. EPIVIR [Suspect]
     Indication: HIV INFECTION
     Dates: start: 20040605
  2. STAVUDINE (STAVUDINE) [Suspect]
     Indication: HIV INFECTION
     Dates: start: 20040605
  3. NEVIRAPINE (NEVIRAPINE) [Suspect]
     Indication: HIV INFECTION
     Dates: start: 20040605

REACTIONS (5)
  - DEHYDRATION [None]
  - DIARRHOEA [None]
  - GAMMA-GLUTAMYLTRANSFERASE INCREASED [None]
  - TUBERCULOSIS GASTROINTESTINAL [None]
  - VOMITING [None]
